FAERS Safety Report 10078476 (Version 1)
Quarter: 2014Q2

REPORT INFORMATION
  Report Type: Spontaneous
  Country: US (occurrence: US)
  Receive Date: 20140415
  Receipt Date: 20140415
  Transmission Date: 20141212
  Serious: Yes (Other)
  Sender: FDA-Public Use
  Company Number: US-AMGEN-USASP2014025974

PATIENT
  Sex: 0

DRUGS (3)
  1. XGEVA [Suspect]
     Indication: METASTASES TO BONE
     Dosage: UNK, 120
     Route: 065
  2. ELIGARD [Concomitant]
     Dosage: UNK UNK, QMO
     Route: 065
  3. FIRMAGON                           /01764801/ [Concomitant]
     Dosage: UNK UNK, QMO
     Route: 065

REACTIONS (2)
  - Jaw disorder [Unknown]
  - Prostatic specific antigen abnormal [Unknown]
